FAERS Safety Report 4647416-6 (Version None)
Quarter: 2005Q2

REPORT INFORMATION
  Report Type: 
  Country: None (occurrence: None)
  Receive Date: 20050426
  Receipt Date: 20050419
  Transmission Date: 20051028
  Serious: Yes (Death, Hospitalization)
  Sender: FDA-Public Use
  Company Number: T04-UKI-06409-01

PATIENT
  Age: 83 Year
  Sex: Female

DRUGS (10)
  1. MEMANTINE HCL [Suspect]
     Indication: DEMENTIA
     Dosage: 20 MG QD PO
     Route: 048
     Dates: start: 20040705, end: 20040930
  2. MEMANTINE HCL [Suspect]
     Indication: DEMENTIA
     Dosage: 20 MG QD PO
     Route: 048
     Dates: start: 20030121, end: 20030704
  3. ASPIRIN [Concomitant]
  4. ISTIN (AMLODIPINE BESILATE) [Concomitant]
  5. FUROSEMIDE [Concomitant]
  6. COLOFAC (MEBEVERINE HYDROCHLORIDE) [Concomitant]
  7. VENTOLIN [Concomitant]
  8. BECONASE [Concomitant]
  9. PARAMOL-118 [Concomitant]
  10. GLYCERYL TRINITRATE SPRAY (GLYCERYL TRINITRATE) [Concomitant]

REACTIONS (6)
  - AORTIC STENOSIS [None]
  - AORTIC VALVE STENOSIS [None]
  - MULTI-ORGAN FAILURE [None]
  - PANCREATITIS ACUTE [None]
  - POST PROCEDURAL COMPLICATION [None]
  - RENAL FAILURE [None]
